FAERS Safety Report 5588210-1 (Version None)
Quarter: 2008Q1

REPORT INFORMATION
  Report Type: 
  Country: None (occurrence: None)
  Receive Date: 20080109
  Receipt Date: 20080109
  Transmission Date: 20080703
  Serious: Yes (Hospitalization)
  Sender: FDA-Public Use
  Company Number: None

PATIENT
  Age: 87 Year
  Sex: Male

DRUGS (1)
  1. WARFARIN SODIUM [Suspect]
     Indication: ATRIAL FIBRILLATION
     Dosage: 2.5MG EVERY DAY PO
     Route: 048
     Dates: start: 20051116

REACTIONS (8)
  - BENIGN PROSTATIC HYPERPLASIA [None]
  - BLADDER SPASM [None]
  - CATHETER RELATED COMPLICATION [None]
  - CHROMATURIA [None]
  - HAEMATURIA [None]
  - SUPRAPUBIC PAIN [None]
  - THROMBOSIS [None]
  - URINE OUTPUT DECREASED [None]
